FAERS Safety Report 13391996 (Version 3)
Quarter: 2017Q2

REPORT INFORMATION
  Report Type: Spontaneous
  Country: HU (occurrence: HU)
  Receive Date: 20170331
  Receipt Date: 20170602
  Transmission Date: 20170830
  Serious: Yes (Hospitalization, Other)
  Sender: FDA-Public Use
  Company Number: HU-AMGEN-HUNSP2017048686

PATIENT
  Age: 37 Year
  Sex: Female

DRUGS (2)
  1. ENBREL [Suspect]
     Active Substance: ETANERCEPT
     Indication: RHEUMATOID ARTHRITIS
     Dosage: 50 MG, WEEKLY
     Route: 065
     Dates: start: 2005, end: 20161222
  2. FRONTIN [Concomitant]
     Active Substance: ALPRAZOLAM
     Dosage: UNK

REACTIONS (5)
  - Viral infection [Unknown]
  - Blood pressure inadequately controlled [Recovered/Resolved]
  - Tooth loss [Unknown]
  - Vomiting [Unknown]
  - Blood glucose increased [Recovered/Resolved]

NARRATIVE: CASE EVENT DATE: 201602
